FAERS Safety Report 6767315-3 (Version None)
Quarter: 2010Q2

REPORT INFORMATION
  Report Type: 
  Country: None (occurrence: None)
  Receive Date: 20100614
  Receipt Date: 20100602
  Transmission Date: 20101027
  Serious: Yes (Hospitalization, Other)
  Sender: FDA-Public Use
  Company Number: FR-BAYER-201027650GPV

PATIENT
  Age: 81 Year
  Sex: Male

DRUGS (11)
  1. NEXAVAR [Suspect]
     Indication: DRUG USE FOR UNKNOWN INDICATION
     Dosage: TOTAL DAILY DOSE: 800 MG  UNIT DOSE: 200 MG
     Dates: start: 20100330, end: 20100412
  2. NEURONTIN [Suspect]
     Indication: DRUG USE FOR UNKNOWN INDICATION
     Dosage: TOTAL DAILY DOSE: 200 MG
     Dates: start: 20091201
  3. PREVISCAN [Concomitant]
     Dosage: ACCORDING TO INR
     Dates: start: 19890101
  4. FUROSEMIDE [Concomitant]
     Dosage: TOTAL DAILY DOSE: 120 MG
  5. BISOPROLOL [Concomitant]
     Dosage: TOTAL DAILY DOSE: 5 MG
     Dates: start: 19940101
  6. VASTAREL [Concomitant]
     Dosage: TOTAL DAILY DOSE: 70 MG
  7. DAFALGAN [Concomitant]
     Dosage: TOTAL DAILY DOSE: 6 DF
     Dates: start: 20000101
  8. COVERSYL [Concomitant]
     Dosage: TOTAL DAILY DOSE: 10 MG
     Dates: start: 20050101
  9. LECTIL [Concomitant]
     Dosage: TOTAL DAILY DOSE: 32 MG
     Dates: start: 20050101
  10. ALLOPURINOL [Concomitant]
     Dosage: TOTAL DAILY DOSE: 100 MG
     Dates: start: 20071001
  11. NEORECORMON [Concomitant]
     Dosage: TOTAL DAILY DOSE: 1 DF
     Dates: start: 20100330

REACTIONS (7)
  - ASTHENIA [None]
  - CONFUSIONAL STATE [None]
  - JAUNDICE CHOLESTATIC [None]
  - LYMPHOPENIA [None]
  - PSYCHOMOTOR RETARDATION [None]
  - PURPURA [None]
  - THROMBOCYTOPENIA [None]
